FAERS Safety Report 10206991 (Version 1)
Quarter: 2014Q2

REPORT INFORMATION
  Report Type: Spontaneous
  Country: CN (occurrence: CN)
  Receive Date: 20140530
  Receipt Date: 20140530
  Transmission Date: 20141212
  Serious: Yes (Other)
  Sender: FDA-Public Use
  Company Number: CN-ACTAVIS-2014-11554

PATIENT
  Age: 77 Year
  Sex: Male

DRUGS (1)
  1. PREDNISONE (UNKNOWN) [Suspect]
     Indication: NEPHROTIC SYNDROME
     Dosage: 50 MG, DAILY
     Route: 065

REACTIONS (1)
  - Hepatitis B [Recovering/Resolving]
